FAERS Safety Report 12558415 (Version 1)
Quarter: 2016Q3

REPORT INFORMATION
  Report Type: Spontaneous
  Country: US (occurrence: US)
  Receive Date: 20160714
  Receipt Date: 20160714
  Transmission Date: 20161109
  Serious: Yes (Death)
  Sender: FDA-Public Use
  Company Number: US-SPECTRUM PHARMACEUTICALS, INC.-16-F-US-00188

PATIENT
  Age: 46 Year
  Sex: Female

DRUGS (24)
  1. ALOXI [Concomitant]
     Active Substance: PALONOSETRON HYDROCHLORIDE
     Indication: DUCTAL ADENOCARCINOMA OF PANCREAS
     Dosage: UNK
     Dates: start: 2016
  2. COMPAZINE [Concomitant]
     Active Substance: PROCHLORPERAZINE MALEATE
     Indication: PRODUCT USED FOR UNKNOWN INDICATION
     Dosage: 1 DF, EVERY 6HRS
     Route: 048
     Dates: start: 20150505
  3. DOCUSATE SODIUM. [Concomitant]
     Active Substance: DOCUSATE SODIUM
     Indication: PRODUCT USED FOR UNKNOWN INDICATION
     Dosage: 1 DF, TID
     Route: 048
     Dates: start: 20150330
  4. SENNA                              /00142201/ [Concomitant]
     Active Substance: SENNA LEAF
     Indication: PRODUCT USED FOR UNKNOWN INDICATION
     Dosage: 1 DF, BID
     Route: 048
     Dates: start: 20150330
  5. ZOFRAN [Concomitant]
     Active Substance: ONDANSETRON HYDROCHLORIDE
     Dosage: 16 MG, SEPERATE BAG ONCE
     Route: 042
     Dates: start: 20151026
  6. ELOXATIN [Suspect]
     Active Substance: OXALIPLATIN
     Indication: DUCTAL ADENOCARCINOMA OF PANCREAS
     Dosage: 110 MG, SEPARATE BAG
     Route: 042
     Dates: start: 20160125
  7. 5-FU                               /00098801/ [Suspect]
     Active Substance: FLUOROURACIL
     Indication: DUCTAL ADENOCARCINOMA OF PANCREAS
     Dosage: 3091 MG, UNK
     Route: 042
     Dates: start: 20160125
  8. MORPHINE [Concomitant]
     Active Substance: MORPHINE
     Dosage: 1 DF, BID
     Route: 048
     Dates: start: 20150409
  9. ZOFRAN [Concomitant]
     Active Substance: ONDANSETRON HYDROCHLORIDE
     Dosage: 16 MG, UNK
     Route: 042
     Dates: start: 20160127
  10. CAMPTOSAR [Suspect]
     Active Substance: IRINOTECAN HYDROCHLORIDE
     Indication: DUCTAL ADENOCARCINOMA OF PANCREAS
     Dosage: UNK
     Dates: start: 2016
  11. ATROPINE. [Concomitant]
     Active Substance: ATROPINE
     Indication: DUCTAL ADENOCARCINOMA OF PANCREAS
     Dosage: UNK UG, UNK
     Dates: start: 2016
  12. DECADRON [Concomitant]
     Active Substance: DEXAMETHASONE
     Indication: DUCTAL ADENOCARCINOMA OF PANCREAS
     Dosage: 2 DF, UNK
     Dates: start: 2016
  13. MORPHINE [Concomitant]
     Active Substance: MORPHINE
     Indication: PRODUCT USED FOR UNKNOWN INDICATION
     Dosage: 1 DF, BID
     Route: 048
     Dates: start: 20150330
  14. MORPHINE [Concomitant]
     Active Substance: MORPHINE
     Dosage: 1 DF, BID, 30MG CAP ER MULTIPHASE 24HR
     Route: 048
     Dates: start: 20150406
  15. OXYCODONE [Concomitant]
     Active Substance: OXYCODONE
     Indication: PRODUCT USED FOR UNKNOWN INDICATION
     Dosage: 1 DF, EVERY 6 HRS
     Route: 048
     Dates: start: 20150406
  16. MARINOL [Concomitant]
     Active Substance: DRONABINOL
     Indication: PRODUCT USED FOR UNKNOWN INDICATION
     Dosage: 1 DF, QD
     Route: 048
     Dates: start: 20151224
  17. FUSILEV [Suspect]
     Active Substance: LEVOLEUCOVORIN CALCIUM
     Indication: DUCTAL ADENOCARCINOMA OF PANCREAS
     Dosage: 258 MG, ONCE
     Route: 042
     Dates: start: 20160125
  18. REMERON [Concomitant]
     Active Substance: MIRTAZAPINE
     Indication: PRODUCT USED FOR UNKNOWN INDICATION
     Dosage: 1 DF, QD
     Route: 048
     Dates: start: 20150629
  19. VENOFER [Concomitant]
     Active Substance: IRON SUCROSE
     Indication: PRODUCT USED FOR UNKNOWN INDICATION
     Dosage: 200 MG, SEPERATE BAG ONCE
     Route: 042
     Dates: start: 20160226
  20. NORMAL SALINE [Concomitant]
     Active Substance: SODIUM CHLORIDE
     Indication: PRODUCT USED FOR UNKNOWN INDICATION
     Dosage: 1 L, SEPARATE BAG
     Route: 042
     Dates: start: 20160311
  21. EMEND [Concomitant]
     Active Substance: APREPITANT
     Indication: DUCTAL ADENOCARCINOMA OF PANCREAS
     Dosage: UNK
     Dates: start: 2016
  22. FLEET ENEMA                        /00103901/ [Concomitant]
     Indication: PRODUCT USED FOR UNKNOWN INDICATION
     Dosage: 1 DF, QD
     Route: 054
     Dates: start: 20150330
  23. ZOFRAN [Concomitant]
     Active Substance: ONDANSETRON HYDROCHLORIDE
     Dosage: 8 MG, Q8HRS PRN
     Route: 048
     Dates: start: 20150826
  24. ZOFRAN [Concomitant]
     Active Substance: ONDANSETRON HYDROCHLORIDE
     Indication: NAUSEA
     Dosage: 1 DF, EVERY 8 HRS AS NEEDED
     Route: 048
     Dates: start: 20150407

REACTIONS (2)
  - Off label use [Unknown]
  - Biliary tract infection [Fatal]

NARRATIVE: CASE EVENT DATE: 20160317
